FAERS Safety Report 12696560 (Version 1)
Quarter: 2016Q3

REPORT INFORMATION
  Report Type: Spontaneous
  Country: AU (occurrence: AU)
  Receive Date: 20160830
  Receipt Date: 20160830
  Transmission Date: 20161109
  Serious: Yes (Other)
  Sender: FDA-Public Use
  Company Number: AU-ROCHE-1818590

PATIENT
  Age: 57 Year
  Sex: Male

DRUGS (1)
  1. GAZYVA [Suspect]
     Active Substance: OBINUTUZUMAB
     Indication: PRODUCT USED FOR UNKNOWN INDICATION
     Dosage: CYCLE 1, DAY 1
     Route: 042

REACTIONS (3)
  - Infusion related reaction [Unknown]
  - Drug administration error [Unknown]
  - Loss of consciousness [Unknown]
